FAERS Safety Report 20891230 (Version 1)
Quarter: 2022Q2

REPORT INFORMATION
  Report Type: Spontaneous
  Country: US (occurrence: US)
  Receive Date: 20220530
  Receipt Date: 20220530
  Transmission Date: 20220721
  Serious: Yes (Other)
  Sender: FDA-Public Use
  Company Number: US-GLAXOSMITHKLINE-USCH2022AMR018894

PATIENT

DRUGS (3)
  1. DICLOFENAC DIETHYLAMINE [Suspect]
     Active Substance: DICLOFENAC DIETHYLAMINE
     Indication: Inflammation
     Dosage: UNK UNK, 1D (2 IN 1 D)
  2. HUMIRA [Suspect]
     Active Substance: ADALIMUMAB
     Indication: Rheumatoid arthritis
     Dosage: UNK
     Route: 058
     Dates: start: 20220428
  3. HUMIRA [Suspect]
     Active Substance: ADALIMUMAB
     Indication: Psoriasis

REACTIONS (10)
  - Rheumatoid arthritis [Unknown]
  - Musculoskeletal disorder [Recovering/Resolving]
  - Pallor [Recovering/Resolving]
  - Feeling drunk [Recovering/Resolving]
  - Somnolence [Unknown]
  - Dizziness [Recovered/Resolved]
  - Inflammation [Unknown]
  - Diarrhoea [Unknown]
  - Injection site pain [Unknown]
  - Dysgeusia [Recovering/Resolving]

NARRATIVE: CASE EVENT DATE: 20220101
